FAERS Safety Report 6656397-5 (Version None)
Quarter: 2010Q1

REPORT INFORMATION
  Report Type: 
  Country: None (occurrence: None)
  Receive Date: 20100329
  Receipt Date: 20100317
  Transmission Date: 20100710
  Serious: Yes (Hospitalization, Other)
  Sender: FDA-Public Use
  Company Number: US-ROCHE-649306

PATIENT
  Sex: Female
  Weight: 61.2 kg

DRUGS (1)
  1. ACCUTANE [Suspect]
     Indication: ACNE
     Dosage: 40 MG QD ALTERNATING WITH 40 MG BID ON MON, WED, FRI
     Route: 065
     Dates: start: 20000309, end: 20000725

REACTIONS (11)
  - ANAL FISSURE [None]
  - BACK PAIN [None]
  - BLOOD CHOLESTEROL INCREASED [None]
  - CHEILITIS [None]
  - COLITIS ULCERATIVE [None]
  - DEPRESSION [None]
  - FATIGUE [None]
  - INFLAMMATORY BOWEL DISEASE [None]
  - IRRITABLE BOWEL SYNDROME [None]
  - NEPHROLITHIASIS [None]
  - NIGHT BLINDNESS [None]
